FAERS Safety Report 6916002-7 (Version None)
Quarter: 2010Q3

REPORT INFORMATION
  Report Type: 
  Country: None (occurrence: None)
  Receive Date: 20100809
  Receipt Date: 20100809
  Transmission Date: 20110219
  Serious: Yes (Life-Threatening)
  Sender: FDA-Public Use
  Company Number: None

PATIENT
  Age: 45 Year
  Sex: Female
  Weight: 77.1115 kg

DRUGS (2)
  1. DEPAKOTE [Suspect]
     Indication: FIBROMYALGIA
     Dosage: 500 MG. 2 TIMES DAILY PO
     Route: 048
     Dates: start: 20091101, end: 20091201
  2. LYRICA [Suspect]
     Indication: FIBROMYALGIA
     Dosage: 200 MG. 3 TIMES DAILY PO
     Route: 048
     Dates: start: 20080901, end: 20091101

REACTIONS (6)
  - COUGH [None]
  - DYSPHAGIA [None]
  - DYSPHONIA [None]
  - OROPHARYNGEAL PAIN [None]
  - PHARYNGEAL OEDEMA [None]
  - RETCHING [None]
